FAERS Safety Report 9774472 (Version 5)
Quarter: 2014Q1

REPORT INFORMATION
  Report Type: Report from Study
  Country: AU (occurrence: AU)
  Receive Date: 20131220
  Receipt Date: 20140307
  Transmission Date: 20141002
  Serious: Yes (Other)
  Sender: FDA-Public Use
  Company Number: AU-VERTEX PHARMACEUTICALS INC-2013-011930

PATIENT
  Age: 41 Year
  Sex: Female

DRUGS (6)
  1. TELAPREVIR [Suspect]
     Indication: HEPATITIS C
     Dosage: UNK
     Dates: start: 20131104, end: 20131213
  2. RIBAVIRIN [Suspect]
     Indication: HEPATITIS C
     Dosage: 800 MG, UNK
     Route: 065
     Dates: start: 20131104
  3. PEGINTERFERON ALFA [Suspect]
     Indication: HEPATITIS C
     Dosage: DOSAGE FORM: UNSPECIFIED
     Route: 058
     Dates: start: 20131104
  4. PEGINTERFERON ALFA [Suspect]
     Dosage: DOSAGE FORM: UNSPECIFIED
     Route: 058
     Dates: start: 20140131
  5. CIPRAMIL [Concomitant]
     Indication: DEPRESSION
  6. DOXYCYCLINE [Concomitant]
     Indication: SKIN REACTION
     Dosage: 25 OR 50 MG DAILY VIA GP^

REACTIONS (2)
  - Neutrophil count decreased [Unknown]
  - Prurigo [Recovering/Resolving]
